FAERS Safety Report 12473074 (Version 1)
Quarter: 2016Q2

REPORT INFORMATION
  Report Type: Report from Study
  Country: JP (occurrence: JP)
  Receive Date: 20160616
  Receipt Date: 20160616
  Transmission Date: 20160815
  Serious: Yes (Hospitalization)
  Sender: FDA-Public Use
  Company Number: JP-DSJP-DSJ-2016-120033

PATIENT

DRUGS (17)
  1. 5-FU                               /00098801/ [Suspect]
     Active Substance: FLUOROURACIL
     Dosage: 3400MG/DAY
     Route: 042
  2. URSO [Concomitant]
     Active Substance: URSODIOL
     Dosage: 300MG/DAY
     Route: 065
  3. MIYA-BM [Concomitant]
     Active Substance: CLOSTRIDIUM BUTYRICUM SPORES STRAIN M-55
     Dosage: UNK
     Route: 048
     Dates: start: 20151104, end: 20151113
  4. ISOVORIN                           /06682103/ [Concomitant]
     Active Substance: LEUCOVORIN CALCIUM
     Dosage: 325-340MG/DAY
     Route: 042
  5. AMARYL [Concomitant]
     Active Substance: GLIMEPIRIDE
     Dosage: 1MG/DAY
     Route: 048
     Dates: start: 20151203, end: 20151204
  6. TOPOTECIN INTRAVENOUS DRIP INFUSION [Suspect]
     Active Substance: IRINOTECAN HYDROCHLORIDE
     Indication: PRODUCT USED FOR UNKNOWN INDICATION
     Dosage: 200MG/DAY
     Route: 042
  7. DECADRON [Concomitant]
     Active Substance: DEXAMETHASONE
     Dosage: 1MG/DAY
     Route: 048
     Dates: start: 20151203, end: 20151204
  8. WARFARIN                           /00014803/ [Concomitant]
     Active Substance: WARFARIN
     Dosage: UNK
     Route: 048
     Dates: start: 20160428
  9. HEPARIN [Concomitant]
     Active Substance: HEPARIN SODIUM
     Dosage: 10000-30000 IU/DAY
     Route: 042
     Dates: start: 20160427, end: 20160505
  10. VECTIBIX [Suspect]
     Active Substance: PANITUMUMAB
     Dosage: 340MG/DAY
     Route: 042
  11. NORVASC [Concomitant]
     Active Substance: AMLODIPINE BESYLATE
     Dosage: 5MG/DAY
     Route: 048
  12. BERIZYM                            /07475701/ [Concomitant]
     Dosage: UNK
     Route: 048
  13. FERROMIA [Concomitant]
     Active Substance: FERROUS CITRATE
     Dosage: 100MG/DAY
     Route: 048
     Dates: start: 20160412
  14. EDOXABAN [Suspect]
     Active Substance: EDOXABAN TOSYLATE
     Indication: PULMONARY EMBOLISM
     Dosage: 60 MG, QD
     Route: 048
     Dates: start: 20151014, end: 20160427
  15. AVASTIN [Suspect]
     Active Substance: BEVACIZUMAB
     Dosage: 340MG/DAY
     Route: 042
     Dates: start: 20160413, end: 20160427
  16. AZILVA [Concomitant]
     Active Substance: AZILSARTAN KAMEDOXOMIL
     Dosage: 20MG/DAY
     Route: 048
  17. AUGMENTIN [Concomitant]
     Active Substance: AMOXICILLIN\CLAVULANATE POTASSIUM
     Dosage: UNK
     Route: 048
     Dates: start: 20151104, end: 20151113

REACTIONS (3)
  - Deep vein thrombosis [Recovering/Resolving]
  - Anaemia [Recovering/Resolving]
  - Pulmonary embolism [Recovering/Resolving]

NARRATIVE: CASE EVENT DATE: 20160327
